FAERS Safety Report 21031717 (Version 1)
Quarter: 2022Q3

REPORT INFORMATION
  Report Type: Spontaneous
  Country: US (occurrence: None)
  Receive Date: 20220701
  Receipt Date: 20220701
  Transmission Date: 20221026
  Serious: No
  Sender: FDA-Public Use
  Company Number: US-ROCHE-2937743

PATIENT
  Sex: Female

DRUGS (2)
  1. ACTEMRA [Suspect]
     Active Substance: TOCILIZUMAB
     Indication: Rheumatoid arthritis
     Dosage: STRENGTH- 400MG/20ML
     Route: 042
     Dates: start: 202105
  2. ACTEMRA [Suspect]
     Active Substance: TOCILIZUMAB
     Dosage: STRENGTH- 80MG/4ML
     Route: 042
     Dates: start: 202105

REACTIONS (3)
  - Rheumatoid arthritis [Unknown]
  - Contusion [Unknown]
  - Inappropriate schedule of product administration [Unknown]
